FAERS Safety Report 4879697-8 (Version None)
Quarter: 2006Q1

REPORT INFORMATION
  Report Type: 
  Country: None (occurrence: None)
  Receive Date: 20060113
  Receipt Date: 20051222
  Transmission Date: 20060701
  Serious: Yes (Hospitalization)
  Sender: FDA-Public Use
  Company Number: PHHO2005TW19929

PATIENT
  Age: 71 Year
  Sex: Female
  Weight: 61 kg

DRUGS (8)
  1. MAGNESIUM [Concomitant]
     Indication: CONSTIPATION
  2. PANTOPRAZOLE SODIUM [Concomitant]
     Indication: GASTRIC ULCER
  3. METOCLOPRAMIDE [Concomitant]
     Indication: GASTRIC ULCER
  4. ISRADIPINE [Concomitant]
     Indication: HYPERTENSION
  5. FENOFIBRATE [Concomitant]
     Indication: HYPERLIPIDAEMIA
  6. INSULIN [Concomitant]
     Indication: DIABETES MELLITUS NON-INSULIN-DEPENDENT
  7. PRAVASTATIN [Concomitant]
     Indication: HYPERLIPIDAEMIA
  8. ZELMAC [Suspect]
     Indication: IRRITABLE BOWEL SYNDROME
     Dosage: 6 MG, BID
     Route: 048
     Dates: start: 20051207, end: 20051219

REACTIONS (7)
  - APHASIA [None]
  - ASTHENIA [None]
  - CEREBRAL ARTERY OCCLUSION [None]
  - HYPERGLYCAEMIA [None]
  - HYPEROSMOLAR STATE [None]
  - MONOPLEGIA [None]
  - MUTISM [None]
